FAERS Safety Report 5021794-0 (Version None)
Quarter: 2006Q2

REPORT INFORMATION
  Report Type: 
  Country: None (occurrence: None)
  Receive Date: 20060605
  Receipt Date: 20060517
  Transmission Date: 20061013
  Serious: Yes (Hospitalization)
  Sender: FDA-Public Use
  Company Number: US200605003852

PATIENT
  Age: 35 Year
  Sex: Female

DRUGS (5)
  1. ZYPREXA [Suspect]
     Indication: BIPOLAR DISORDER
     Dosage: 15 MG, DAILY (1/D); 10  MG, DAILY (1/D);  5MG, EACH EVENING
     Dates: start: 20060101
  2. ZYPREXA [Suspect]
     Indication: BIPOLAR DISORDER
     Dosage: 15 MG, DAILY (1/D); 10  MG, DAILY (1/D);  5MG, EACH EVENING
     Dates: start: 20060101
  3. ZYPREXA [Suspect]
     Indication: BIPOLAR DISORDER
     Dosage: 15 MG, DAILY (1/D); 10  MG, DAILY (1/D);  5MG, EACH EVENING
     Dates: start: 20060101
  4. CARBAMAZEPINE [Concomitant]
  5. LAMOTRIGINE [Concomitant]

REACTIONS (2)
  - PSYCHOTIC DISORDER [None]
  - WEIGHT INCREASED [None]
